FAERS Safety Report 21563414 (Version 2)
Quarter: 2022Q4

REPORT INFORMATION
  Report Type: Report from Study
  Country: US (occurrence: US)
  Receive Date: 20221108
  Receipt Date: 20221110
  Transmission Date: 20230112
  Serious: Yes (Other)
  Sender: FDA-Public Use
  Company Number: US-ABBVIE-4184380

PATIENT
  Age: 60 Year
  Weight: 93.439 kg

DRUGS (16)
  1. HUMIRA [Suspect]
     Active Substance: ADALIMUMAB
     Indication: Ankylosing spondylitis
     Dosage: FORM STRENGTH: 40 MILLIGRAM?START DATE TEXT: APPROXIMATELY 10 YEARS AGO
     Route: 058
     Dates: start: 2012, end: 20221004
  2. HUMIRA [Suspect]
     Active Substance: ADALIMUMAB
     Indication: Psoriatic arthropathy
  3. PFIZER-BIONTECH COVID-19 VACCINE [Concomitant]
     Active Substance: TOZINAMERAN
     Indication: COVID-19 immunisation
     Dosage: DOSE 02?ONE IN ONCE
     Route: 030
     Dates: start: 20210424, end: 20210424
  4. PFIZER-BIONTECH COVID-19 VACCINE [Concomitant]
     Active Substance: TOZINAMERAN
     Indication: COVID-19 immunisation
     Dosage: DOSE 01?ONE IN ONCE
     Route: 030
     Dates: start: 20210327, end: 20210327
  5. PFIZER-BIONTECH COVID-19 VACCINE [Concomitant]
     Active Substance: TOZINAMERAN
     Indication: COVID-19 immunisation
     Dosage: DOSE 03?ONE IN ONCE
     Route: 030
     Dates: start: 20211111, end: 20211111
  6. TYLENOL ARTHRITIS PAIN [Concomitant]
     Active Substance: ACETAMINOPHEN
     Indication: Pain
  7. FLEXERIL [Concomitant]
     Active Substance: CYCLOBENZAPRINE HYDROCHLORIDE
     Indication: Psoriatic arthropathy
  8. PIOGLITAZONE [Concomitant]
     Active Substance: PIOGLITAZONE
     Indication: Diabetes mellitus
  9. ACETAZOLAMIDE [Concomitant]
     Active Substance: ACETAZOLAMIDE
     Indication: Hydrocephalus
  10. VITAMIN D3 [Concomitant]
     Active Substance: CHOLECALCIFEROL
     Indication: Product used for unknown indication
  11. METFORMIN [Concomitant]
     Active Substance: METFORMIN HYDROCHLORIDE
     Indication: Diabetes mellitus
  12. PRILOSEC [Concomitant]
     Active Substance: OMEPRAZOLE MAGNESIUM
     Indication: Dyspepsia
  13. TRESIBA [Concomitant]
     Active Substance: INSULIN DEGLUDEC
     Indication: Diabetes mellitus
  14. LOSARTAN [Concomitant]
     Active Substance: LOSARTAN
     Indication: Hypertension
  15. AMLODIPINE [Concomitant]
     Active Substance: AMLODIPINE BESYLATE
     Indication: Hypertension
  16. FELDENE [Concomitant]
     Active Substance: PIROXICAM
     Indication: Ankylosing spondylitis

REACTIONS (6)
  - Bundle branch block left [Recovered/Resolved]
  - Condition aggravated [Unknown]
  - Road traffic accident [Recovering/Resolving]
  - Ligament sprain [Recovering/Resolving]
  - Pain [Unknown]
  - Head injury [Recovering/Resolving]

NARRATIVE: CASE EVENT DATE: 20220101
